FAERS Safety Report 6509591-8 (Version None)
Quarter: 2009Q4

REPORT INFORMATION
  Report Type: 
  Country: None (occurrence: None)
  Receive Date: 20091222
  Receipt Date: 20091214
  Transmission Date: 20100525
  Serious: Yes (Other)
  Sender: FDA-Public Use
  Company Number: US-ROCHE-624892

PATIENT
  Sex: Female
  Weight: 68 kg

DRUGS (8)
  1. BONIVA [Suspect]
     Indication: OSTEOPENIA
     Route: 048
     Dates: start: 20090313
  2. ZYRTEC-D 12 HOUR [Concomitant]
  3. ALBUTEROL [Concomitant]
  4. VALTREX [Concomitant]
  5. VAGIFEM [Concomitant]
  6. NEXIUM [Concomitant]
  7. SINGULAIR [Concomitant]
     Dosage: DRUG REPORTED: CINGULAR
  8. ESTRADIOL [Concomitant]

REACTIONS (4)
  - BLINDNESS UNILATERAL [None]
  - HEADACHE [None]
  - PAIN IN JAW [None]
  - TRANSIENT ISCHAEMIC ATTACK [None]
